FAERS Safety Report 12589266 (Version 1)
Quarter: 2016Q3

REPORT INFORMATION
  Report Type: Spontaneous
  Country: US (occurrence: US)
  Receive Date: 20160725
  Receipt Date: 20160725
  Transmission Date: 20161109
  Serious: No
  Sender: FDA-Public Use
  Company Number: US-JNJFOC-20160600880

PATIENT
  Age: 24 Month
  Sex: Male
  Weight: 12 kg

DRUGS (2)
  1. CHILDRENS MOTRIN [Suspect]
     Active Substance: IBUPROFEN
     Indication: PYREXIA
     Dosage: 1 TEASPOON EVERY 8 HOURS
     Route: 048
  2. CHILDRENS MOTRIN [Suspect]
     Active Substance: IBUPROFEN
     Route: 048

REACTIONS (1)
  - Extra dose administered [Unknown]
